FAERS Safety Report 5796790-6 (Version None)
Quarter: 2008Q2

REPORT INFORMATION
  Report Type: 
  Country: None (occurrence: None)
  Receive Date: 20080630
  Receipt Date: 20080630
  Transmission Date: 20081010
  Serious: Yes (Hospitalization)
  Sender: FDA-Public Use
  Company Number: None

PATIENT
  Sex: Male
  Weight: 83.9154 kg

DRUGS (7)
  1. TAXOTERE [Suspect]
     Indication: PROSTATE CANCER
     Dosage: 134MGIVBP
     Route: 040
  2. BEVACIZUMAB 15MG/KG [Suspect]
     Dosage: 1305 MGIVPB
     Route: 042
  3. RAD001 5MG [Suspect]
     Dosage: 5MG PO
     Route: 048
  4. ZOCOR [Concomitant]
  5. TOPROL-XL [Concomitant]
  6. VASOTEC [Concomitant]
  7. CALCIUM PLUS VITAMIN D [Concomitant]

REACTIONS (4)
  - DIARRHOEA [None]
  - HAEMATOCHEZIA [None]
  - HYPOKALAEMIA [None]
  - NO THERAPEUTIC RESPONSE [None]
